FAERS Safety Report 18472741 (Version 4)
Quarter: 2020Q4

REPORT INFORMATION
  Report Type: Spontaneous
  Country: US (occurrence: US)
  Receive Date: 20201106
  Receipt Date: 20201211
  Transmission Date: 20210114
  Serious: Yes (Other)
  Sender: FDA-Public Use
  Company Number: US-PFIZER INC-2018527601

PATIENT
  Age: 50 Year
  Sex: Male

DRUGS (1)
  1. SOMAVERT [Suspect]
     Active Substance: PEGVISOMANT
     Indication: ACROMEGALY
     Dosage: 15 MG, DAILY (15MG 7 DAYS A WEEK)
     Route: 058
     Dates: start: 2003

REACTIONS (3)
  - Bone disorder [Unknown]
  - Diabetes mellitus [Unknown]
  - Intentional product misuse [Unknown]
